FAERS Safety Report 5078539-8 (Version None)
Quarter: 2006Q3

REPORT INFORMATION
  Report Type: 
  Country: None (occurrence: None)
  Receive Date: 20060808
  Receipt Date: 20060801
  Transmission Date: 20061208
  Serious: Yes (Hospitalization, Other)
  Sender: FDA-Public Use
  Company Number: 2005BI014441

PATIENT
  Age: 31 Year
  Sex: Female

DRUGS (1)
  1. AVONEX [Suspect]
     Indication: MULTIPLE SCLEROSIS
     Dosage: 30 UG; QW; IM
     Route: 030
     Dates: start: 20020301

REACTIONS (6)
  - CONVULSION [None]
  - MULTIPLE SCLEROSIS RELAPSE [None]
  - PAIN [None]
  - POST-TRAUMATIC STRESS DISORDER [None]
  - STRESS [None]
  - SUICIDAL IDEATION [None]
